FAERS Safety Report 5543076-0 (Version None)
Quarter: 2007Q4

REPORT INFORMATION
  Report Type: 
  Country: None (occurrence: None)
  Receive Date: 20071123
  Receipt Date: 20070125
  Transmission Date: 20080405
  Serious: Yes (Other)
  Sender: FDA-Public Use
  Company Number: US-JNJFOC-20070107142

PATIENT
  Age: 67 Year
  Sex: Female
  Weight: 99.7913 kg

DRUGS (4)
  1. LEVAQUIN [Suspect]
     Indication: STAPHYLOCOCCAL INFECTION
     Dosage: 500 MG, 1 IN 1 DAY, ORAL
     Route: 048
     Dates: start: 20060601, end: 20060701
  2. ZOCOR [Concomitant]
  3. ZETIA (CHOLESTEROL- AND TRIGLYCERIDE REDUCERS) TABLET [Concomitant]
  4. PRILOSEC [Concomitant]

REACTIONS (2)
  - PLATELET COUNT DECREASED [None]
  - RASH [None]
